FAERS Safety Report 6032978-7 (Version None)
Quarter: 2009Q1

REPORT INFORMATION
  Report Type: 
  Country: None (occurrence: None)
  Receive Date: 20090109
  Receipt Date: 20090108
  Transmission Date: 20090719
  Serious: Yes (Hospitalization)
  Sender: FDA-Public Use
  Company Number: A0762695A

PATIENT
  Sex: Male

DRUGS (2)
  1. AVANDIA [Suspect]
     Indication: TYPE 2 DIABETES MELLITUS
     Dosage: 4MG VARIABLE DOSE
     Route: 048
     Dates: start: 19991101
  2. BLOOD THINNER [Suspect]

REACTIONS (8)
  - BEDRIDDEN [None]
  - CARDIAC FAILURE CONGESTIVE [None]
  - FLUID RETENTION [None]
  - ILL-DEFINED DISORDER [None]
  - IMPAIRED WORK ABILITY [None]
  - INTESTINAL HAEMORRHAGE [None]
  - PULMONARY THROMBOSIS [None]
  - WEIGHT INCREASED [None]
